FAERS Safety Report 9388769 (Version 2)
Quarter: 2013Q3

REPORT INFORMATION
  Report Type: Report from Study
  Country: IT (occurrence: IT)
  Receive Date: 20130708
  Receipt Date: 20130725
  Transmission Date: 20140515
  Serious: Yes (Death)
  Sender: FDA-Public Use
  Company Number: IT-GLAXOSMITHKLINE-B0905803A

PATIENT
  Age: 73 Year
  Sex: Female

DRUGS (1)
  1. VOTRIENT [Suspect]
     Indication: UTERINE LEIOMYOSARCOMA
     Dosage: 200MG PER DAY
     Route: 048
     Dates: start: 201303, end: 20130609

REACTIONS (5)
  - Encephalitis [Fatal]
  - Sepsis [Fatal]
  - Hydronephrosis [Fatal]
  - Renal failure [Fatal]
  - Hypercreatinaemia [Recovered/Resolved]
